APPROVED DRUG PRODUCT: ROSZET
Active Ingredient: EZETIMIBE; ROSUVASTATIN CALCIUM
Strength: 10MG;EQ 5MG BASE
Dosage Form/Route: TABLET;ORAL
Application: N213072 | Product #001
Applicant: ALTHERA PHARMACEUTICALS LLC
Approved: Mar 23, 2021 | RLD: Yes | RS: No | Type: DISCN

PATENTS:
Patent 10376470 | Expires: May 1, 2033
Patent 9763885 | Expires: May 1, 2033